FAERS Safety Report 6665486-0 (Version None)
Quarter: 2010Q1

REPORT INFORMATION
  Report Type: 
  Country: None (occurrence: None)
  Receive Date: 20100325
  Receipt Date: 20091117
  Transmission Date: 20100710
  Serious: No
  Sender: FDA-Public Use
  Company Number: 2009-00745

PATIENT
  Age: 76 Year
  Sex: Female
  Weight: 59.8748 kg

DRUGS (1)
  1. COLD REMEDY RAPIDMELTS WITH VITAMIN C + ECHINACEA [Suspect]
     Dosage: QID  5 DOSES
     Dates: start: 20091116

REACTIONS (1)
  - AGEUSIA [None]
